FAERS Safety Report 8359623-X (Version None)
Quarter: 2012Q2

REPORT INFORMATION
  Report Type: 
  Country: None (occurrence: None)
  Receive Date: 20120515
  Receipt Date: 20120510
  Transmission Date: 20120825
  Serious: Yes (Death, Hospitalization)
  Sender: FDA-Public Use
  Company Number: FR-PFIZER INC-2009270843

PATIENT
  Age: 76 Year
  Sex: Female
  Weight: 80 kg

DRUGS (15)
  1. ERBITUX [Suspect]
     Indication: COLON CANCER METASTATIC
     Dosage: UNK
     Route: 042
     Dates: start: 20090407, end: 20090505
  2. POLARAMINE [Concomitant]
  3. IRINOTECAN HCL [Suspect]
     Indication: COLON CANCER METASTATIC
     Dosage: UNK
     Route: 042
     Dates: start: 20080910, end: 20090505
  4. LEVOLEUCOVORIN CALCIUM [Suspect]
     Dosage: UNK
     Route: 042
     Dates: start: 20080910, end: 20090407
  5. ACTOS [Concomitant]
  6. REPAGLINIDE [Concomitant]
  7. ZOFRAN [Concomitant]
  8. CELIPROLOL [Concomitant]
  9. SOLU-MEDROL [Concomitant]
  10. NEULASTA [Concomitant]
     Dosage: UNK
     Dates: start: 20081006
  11. PRAVASTATIN [Concomitant]
  12. COAPROVEL [Concomitant]
  13. AVASTIN [Suspect]
     Indication: COLON CANCER METASTATIC
     Dosage: 5 MG/KG
     Route: 042
     Dates: start: 20080912, end: 20090311
  14. ATROPINE [Concomitant]
  15. FLUOROURACIL [Suspect]
     Indication: COLON CANCER METASTATIC
     Dosage: UNK
     Route: 042
     Dates: start: 20080910, end: 20090505

REACTIONS (10)
  - INTRACRANIAL TUMOUR HAEMORRHAGE [None]
  - SOMNOLENCE [None]
  - NEUTROPENIA [None]
  - BRAIN OEDEMA [None]
  - DISEASE PROGRESSION [None]
  - COLON CANCER METASTATIC [None]
  - GENERAL PHYSICAL HEALTH DETERIORATION [None]
  - CENTRAL NERVOUS SYSTEM LESION [None]
  - ESCHERICHIA SEPSIS [None]
  - DIARRHOEA [None]
